FAERS Safety Report 5740864-2 (Version None)
Quarter: 2008Q2

REPORT INFORMATION
  Report Type: 
  Country: None (occurrence: None)
  Receive Date: 20080516
  Receipt Date: 20080512
  Transmission Date: 20081010
  Serious: Yes (Other)
  Sender: FDA-Public Use
  Company Number: ES-BOEHRINGER INGELHEIM GMBH, GERMANY-2008-BP-07586RO

PATIENT
  Age: 38 Year
  Sex: Female

DRUGS (6)
  1. PREDNISONE TAB [Suspect]
     Indication: DENTAL IMPLANTATION
     Route: 048
  2. PREDNISONE TAB [Suspect]
     Route: 048
  3. METHAMIZOLE [Suspect]
     Indication: DENTAL IMPLANTATION
     Route: 048
  4. AZITHROMYCIN [Suspect]
     Indication: DENTAL IMPLANTATION
     Route: 048
  5. METHYLPREDNISOLONE [Concomitant]
     Indication: RASH MACULO-PAPULAR
     Route: 042
  6. ANTIHISTAMINES [Concomitant]
     Indication: RASH MACULO-PAPULAR
     Route: 048

REACTIONS (1)
  - RASH MACULO-PAPULAR [None]
